FAERS Safety Report 6594105-7 (Version None)
Quarter: 2010Q1

REPORT INFORMATION
  Report Type: 
  Country: None (occurrence: None)
  Receive Date: 20100222
  Receipt Date: 20100212
  Transmission Date: 20100710
  Serious: Yes (Death, Hospitalization)
  Sender: FDA-Public Use
  Company Number: US-ROCHE-680389

PATIENT
  Sex: Male
  Weight: 86.2 kg

DRUGS (1)
  1. CAPECITABINE [Suspect]
     Dosage: 4 TABLETS TWICE DAILY
     Route: 048
     Dates: start: 20091125, end: 20100109

REACTIONS (2)
  - MALIGNANT NEOPLASM PROGRESSION [None]
  - SKIN DISCOLOURATION [None]
